FAERS Safety Report 5214654-3 (Version None)
Quarter: 2007Q1

REPORT INFORMATION
  Report Type: 
  Country: None (occurrence: None)
  Receive Date: 20070122
  Receipt Date: 20070108
  Transmission Date: 20070707
  Serious: Yes (Life-Threatening)
  Sender: FDA-Public Use
  Company Number: US-ELI_LILLY_AND_COMPANY-US200701001275

PATIENT
  Age: 69 Year
  Sex: Male

DRUGS (1)
  1. CYMBALTA [Suspect]

REACTIONS (1)
  - CARDIAC ARREST [None]
